FAERS Safety Report 9855095 (Version 1)
Quarter: 2014Q1

REPORT INFORMATION
  Report Type: Spontaneous
  Country: IN (occurrence: None)
  Receive Date: 20140127
  Receipt Date: 20140127
  Transmission Date: 20141002
  Serious: Yes (Other)
  Sender: FDA-Public Use
  Company Number: 2014P1000363

PATIENT
  Age: 35 Year
  Sex: Female
  Weight: 66 kg

DRUGS (13)
  1. OXYTOCIN [Suspect]
     Indication: CAESAREAN SECTION
     Route: 042
  2. OXYTOCIN [Suspect]
     Indication: UTERINE CONTRACTIONS ABNORMAL
     Route: 042
  3. LEVOTHYROXIN [Concomitant]
  4. OMEPRAZOLE [Concomitant]
  5. SALMETEROL [Concomitant]
  6. FLUTICASONE [Concomitant]
  7. AZITHROMYCIN [Concomitant]
  8. SALBUTAMOL [Concomitant]
  9. TOBRAMYCIN [Concomitant]
  10. BUPIVACAINE [Concomitant]
  11. FENTANYL [Concomitant]
  12. PHENYLEPHRINE [Concomitant]
  13. ONDANSETRON [Concomitant]

REACTIONS (4)
  - Oxygen saturation decreased [None]
  - Sinus tachycardia [None]
  - Bronchiectasis [None]
  - Lung consolidation [None]
